FAERS Safety Report 9316257 (Version 1)
Quarter: 2013Q2

REPORT INFORMATION
  Report Type: Spontaneous
  Country: DE (occurrence: None)
  Receive Date: 20130521
  Receipt Date: 20130521
  Transmission Date: 20140414
  Serious: Yes (Hospitalization)
  Sender: FDA-Public Use
  Company Number: AUR-APL-2013-04004

PATIENT
  Age: 72 Year
  Sex: Male
  Weight: 73.4 kg

DRUGS (7)
  1. BISOPROLOL [Suspect]
     Indication: HYPERTENSION
     Dosage: 2.5MG (2.5MG, 1 IN 1 D) ORAL
     Route: 048
  2. IRINOTECAN HCL [Suspect]
     Indication: COLORECTAL CANCER METASTATIC
     Dosage: (260 MG, 1 WK), INTRAVENOUS
     Route: 042
     Dates: start: 20120626, end: 20120927
  3. CETUXIMAB [Suspect]
     Indication: COLORECTAL CANCER METASTATIC
     Dosage: (360 MG, 1 WK) INTRAVENOUS
     Route: 042
     Dates: start: 20120626, end: 20120927
  4. FLUOROURACIL [Suspect]
     Indication: COLORECTAL CANCER METASTATIC
     Dosage: 580MG FOR 23H/WEEKLY, INTRAVENOUS
     Route: 040
     Dates: start: 20120626, end: 20120927
  5. FOLINIC ACID [Suspect]
     Indication: COLORECTAL CANCER METASTATIC
     Dosage: 580 MG, 1 WK, INTRAVENOUS
     Route: 040
     Dates: start: 20120626, end: 20120927
  6. LASIX [Suspect]
     Indication: HYPERTENSION
     Dosage: 40MG (40MG, 1 IN 1D), ORAL
     Route: 048
  7. RAMIPRIL COMP [Suspect]
     Indication: HYPERTENSION
     Route: 048

REACTIONS (2)
  - Pneumonia [None]
  - Device related sepsis [None]
